FAERS Safety Report 4320963-2 (Version None)
Quarter: 2004Q1

REPORT INFORMATION
  Report Type: 
  Country: None (occurrence: None)
  Receive Date: 20040318
  Receipt Date: 20040304
  Transmission Date: 20041129
  Serious: Yes (Death)
  Sender: FDA-Public Use
  Company Number: 2004S1000650

PATIENT
  Age: 57 Year
  Sex: Female

DRUGS (1)
  1. CLOZAPINE [Suspect]
     Indication: SCHIZOPHRENIA, PARANOID TYPE
     Dosage: 200MG Q AM + 400MG Q HS, ORAL
     Route: 048
     Dates: end: 20040226

REACTIONS (3)
  - LUNG NEOPLASM MALIGNANT [None]
  - MYOCARDIAL INFARCTION [None]
  - SUDDEN DEATH [None]
